FAERS Safety Report 21590536 (Version 2)
Quarter: 2022Q4

REPORT INFORMATION
  Report Type: Spontaneous
  Country: US (occurrence: US)
  Receive Date: 20221114
  Receipt Date: 20221206
  Transmission Date: 20230113
  Serious: Yes (Death, Other)
  Sender: FDA-Public Use
  Company Number: US-BRISTOL-MYERS SQUIBB COMPANY-2022-135838

PATIENT
  Age: 62 Year
  Sex: Male

DRUGS (13)
  1. THALOMID [Suspect]
     Active Substance: THALIDOMIDE
     Indication: Plasma cell myeloma
     Dosage: DOSE : 50 MG;     FREQ : ONCE DAILY
     Route: 048
     Dates: start: 20220318
  2. THALOMID [Suspect]
     Active Substance: THALIDOMIDE
     Dosage: ONE CAPSULE EVERY NIGHT AT BED TIME
     Route: 048
     Dates: start: 20210104
  3. PRORENAL D [Concomitant]
  4. ACYCLOVIR [Concomitant]
     Active Substance: ACYCLOVIR
  5. ASPIRIN [Concomitant]
     Active Substance: ASPIRIN
  6. CLONAZEPAM [Concomitant]
     Active Substance: CLONAZEPAM
  7. DEXAMETHASONE [Concomitant]
     Active Substance: DEXAMETHASONE
  8. LEVOTHYROXIN KSA [Concomitant]
  9. METOPROLOL [Concomitant]
     Active Substance: METOPROLOL
  10. RANITIDINE [Concomitant]
     Active Substance: RANITIDINE
  11. RENVELA [Concomitant]
     Active Substance: SEVELAMER CARBONATE
  12. SIMVASTATIN [Concomitant]
     Active Substance: SIMVASTATIN
  13. HYDROCODONE BITARTRATE AND ACETAMINOPHEN [Concomitant]
     Active Substance: ACETAMINOPHEN\HYDROCODONE BITARTRATE
     Dosage: 10-325  MG

REACTIONS (1)
  - Death [Fatal]
